FAERS Safety Report 6488494-1 (Version None)
Quarter: 2009Q4

REPORT INFORMATION
  Report Type: 
  Country: None (occurrence: None)
  Receive Date: 20091210
  Receipt Date: 20090901
  Transmission Date: 20100525
  Serious: No
  Sender: FDA-Public Use
  Company Number: US-AMGEN-KDL362609

PATIENT
  Sex: Female

DRUGS (2)
  1. ENBREL [Suspect]
     Indication: PSORIATIC ARTHROPATHY
     Route: 058
     Dates: start: 20081028
  2. ENBREL [Suspect]
     Indication: PSORIASIS

REACTIONS (3)
  - EYE HAEMORRHAGE [None]
  - JOINT SWELLING [None]
  - OEDEMA PERIPHERAL [None]
